FAERS Safety Report 4748505-8 (Version None)
Quarter: 2005Q3

REPORT INFORMATION
  Report Type: 
  Country: None (occurrence: None)
  Receive Date: 20050818
  Receipt Date: 20050818
  Transmission Date: 20060218
  Serious: Yes (Hospitalization)
  Sender: FDA-Public Use
  Company Number: None

PATIENT
  Age: 74 Year
  Sex: Male
  Weight: 66 kg

DRUGS (1)
  1. BACTRIM [Suspect]
     Indication: PROPHYLAXIS
     Dosage: 1 TAB   MWF   ORAL    (DURATION: ALMOST 4 WEEKS)
     Route: 048

REACTIONS (6)
  - DRUG HYPERSENSITIVITY [None]
  - LIP BLISTER [None]
  - PAIN [None]
  - RASH MACULAR [None]
  - SKIN LESION [None]
  - STOMATITIS [None]
